FAERS Safety Report 9434480 (Version 1)
Quarter: 2013Q3

REPORT INFORMATION
  Report Type: Spontaneous
  Country: FR (occurrence: FR)
  Receive Date: 20130801
  Receipt Date: 20130801
  Transmission Date: 20140515
  Serious: Yes (Hospitalization)
  Sender: FDA-Public Use
  Company Number: FR-JNJFOC-20130715814

PATIENT
  Age: 50 Year
  Sex: Female

DRUGS (12)
  1. SIMPONI [Suspect]
     Indication: RHEUMATOID ARTHRITIS
     Dosage: 7200 MG
     Route: 058
     Dates: start: 201209, end: 201211
  2. ENBREL [Suspect]
     Indication: PRODUCT USED FOR UNKNOWN INDICATION
     Route: 058
     Dates: start: 1984, end: 201209
  3. CALTRATE [Concomitant]
     Route: 048
  4. CORTANCYL [Concomitant]
     Route: 048
  5. GLUCOSAMINE [Concomitant]
     Route: 065
  6. CHONDROITIN SULFATE SODIUM [Concomitant]
     Route: 065
  7. RESTASIS [Concomitant]
     Route: 065
  8. MOPRAL [Concomitant]
     Route: 065
  9. VITAMIN D3 [Concomitant]
     Route: 065
  10. EFFERALGAN [Concomitant]
     Route: 065
  11. VITAMIN B12 [Concomitant]
     Route: 065
  12. CORTISONE [Concomitant]
     Route: 065

REACTIONS (1)
  - Mycosis fungoides [Not Recovered/Not Resolved]
